FAERS Safety Report 9086963 (Version 2)
Quarter: 2013Q3

REPORT INFORMATION
  Report Type: Report from Study
  Country: CA (occurrence: CA)
  Receive Date: 20130217
  Receipt Date: 20130920
  Transmission Date: 20140515
  Serious: Yes (Other)
  Sender: FDA-Public Use
  Company Number: CA-JNJFOC-20130205665

PATIENT
  Age: 60 Year
  Sex: Female
  Weight: 75 kg

DRUGS (5)
  1. REMICADE [Suspect]
     Indication: RHEUMATOID ARTHRITIS
     Dosage: APPROX. NUM OF TOTAL INFUSIONS: 8
     Route: 042
     Dates: end: 20130305
  2. REMICADE [Suspect]
     Indication: RHEUMATOID ARTHRITIS
     Route: 042
     Dates: start: 20130207
  3. REMICADE [Suspect]
     Indication: RHEUMATOID ARTHRITIS
     Route: 042
     Dates: start: 20120510
  4. BENADRYL [Concomitant]
     Indication: PREMEDICATION
     Route: 042
     Dates: start: 20130305
  5. TYLENOL [Concomitant]
     Indication: PREMEDICATION
     Route: 065
     Dates: start: 20130305

REACTIONS (9)
  - Hypertension [Recovered/Resolved]
  - Chest discomfort [Recovered/Resolved]
  - Infusion related reaction [Recovered/Resolved]
  - Heart rate increased [Recovered/Resolved]
  - Malaise [Recovered/Resolved]
  - Erythema [Recovered/Resolved]
  - Hot flush [Recovered/Resolved]
  - Back pain [Recovered/Resolved]
  - Nausea [Recovered/Resolved]
